FAERS Safety Report 10226937 (Version 1)
Quarter: 2014Q2

REPORT INFORMATION
  Report Type: Spontaneous
  Country: US (occurrence: US)
  Receive Date: 20140610
  Receipt Date: 20140610
  Transmission Date: 20141212
  Serious: No
  Sender: FDA-Public Use
  Company Number: US-TEVA-472638USA

PATIENT
  Age: 43 Year
  Sex: Female
  Weight: 57.2 kg

DRUGS (2)
  1. QUARTETTE [Suspect]
     Indication: CONTRACEPTION
     Route: 048
     Dates: start: 20140309
  2. SYNTHROID [Concomitant]
     Indication: HYPOTHYROIDISM

REACTIONS (4)
  - Headache [Not Recovered/Not Resolved]
  - Metrorrhagia [Unknown]
  - Vaginal haemorrhage [Not Recovered/Not Resolved]
  - Abdominal pain lower [Not Recovered/Not Resolved]
